FAERS Safety Report 9979698 (Version 2)
Quarter: 2014Q1

REPORT INFORMATION
  Report Type: Report from Study
  Country: US (occurrence: US)
  Receive Date: 20140306
  Receipt Date: 20140306
  Transmission Date: 20141002
  Serious: Yes (Hospitalization)
  Sender: FDA-Public Use
  Company Number: US-ABBVIE-13P-163-1166719-00

PATIENT
  Sex: Male
  Weight: 86.26 kg

DRUGS (7)
  1. HUMIRA [Suspect]
     Indication: CROHN^S DISEASE
     Dates: start: 2012, end: 201303
  2. HUMIRA [Suspect]
     Dates: start: 20131005, end: 20131005
  3. HUMIRA [Suspect]
     Dates: start: 20131019, end: 20131019
  4. PENTASA [Concomitant]
     Indication: CROHN^S DISEASE
  5. VITAMIN B12 [Concomitant]
     Indication: HYPOVITAMINOSIS
     Route: 050
  6. VITAMIN B12 [Concomitant]
     Indication: HYPOVITAMINOSIS
     Route: 048
  7. MULTIVITAMIN [Concomitant]
     Indication: VITAMIN SUPPLEMENTATION

REACTIONS (3)
  - Crohn^s disease [Recovered/Resolved]
  - Abdominal pain [Recovered/Resolved]
  - Diarrhoea [Recovered/Resolved with Sequelae]
